FAERS Safety Report 5635251-1 (Version None)
Quarter: 2008Q1

REPORT INFORMATION
  Report Type: 
  Country: None (occurrence: None)
  Receive Date: 20080222
  Receipt Date: 20080220
  Transmission Date: 20080703
  Serious: Yes (Death, Other)
  Sender: FDA-Public Use
  Company Number: CA-BOEHRINGER INGELHEIM GMBH, GERMANY-2008-CN-00062CN

PATIENT
  Age: 52 Year
  Sex: Male

DRUGS (2)
  1. VIRAMUNE [Suspect]
     Indication: HIV TEST POSITIVE
     Dates: start: 20030701
  2. TRIZIVIR [Concomitant]
     Indication: HIV TEST POSITIVE
     Dates: start: 20030701

REACTIONS (1)
  - LUNG NEOPLASM MALIGNANT [None]
